FAERS Safety Report 9868308 (Version 2)
Quarter: 2014Q1

REPORT INFORMATION
  Report Type: Report from Study
  Country: ES (occurrence: ES)
  Receive Date: 20140204
  Receipt Date: 20140211
  Transmission Date: 20141002
  Serious: Yes (Hospitalization)
  Sender: FDA-Public Use
  Company Number: ES-ASTRAZENECA-2014SE07571

PATIENT
  Age: 24966 Day
  Sex: Male

DRUGS (6)
  1. AZD6140 [Suspect]
     Indication: CORONARY ARTERY DISEASE
     Route: 048
     Dates: start: 20130130
  2. AZD6140 [Suspect]
     Indication: CORONARY ARTERY DISEASE
     Route: 048
     Dates: start: 20140118
  3. CRESTOR [Concomitant]
     Indication: HYPERCHOLESTEROLAEMIA
     Route: 048
     Dates: start: 20100913
  4. CARVEDILOL [Concomitant]
     Indication: CORONARY ARTERY DISEASE
     Dosage: 6.25
     Route: 048
     Dates: start: 20100913
  5. PANTOPRAZOL [Concomitant]
     Indication: CORONARY ARTERY DISEASE
     Dosage: 20
     Route: 048
     Dates: start: 20100913
  6. ASA [Concomitant]
     Route: 048
     Dates: start: 20100913

REACTIONS (1)
  - Urinary retention [Recovered/Resolved]
